FAERS Safety Report 21984169 (Version 1)
Quarter: 2023Q1

REPORT INFORMATION
  Report Type: Spontaneous
  Country: US (occurrence: None)
  Receive Date: 20230211
  Receipt Date: 20230211
  Transmission Date: 20230418
  Serious: Yes (Other)
  Sender: FDA-Public Use
  Company Number: None

PATIENT
  Age: 47 Year
  Sex: Female
  Weight: 77.85 kg

DRUGS (11)
  1. MEBROFENIN [Suspect]
     Active Substance: MEBROFENIN
  2. KINEVAC [Suspect]
     Active Substance: SINCALIDE
  3. LYRICA [Concomitant]
     Active Substance: PREGABALIN
  4. METOPROLOL [Concomitant]
     Active Substance: METOPROLOL
  5. PEPCID [Concomitant]
     Active Substance: FAMOTIDINE
  6. GLIPIZIDE [Concomitant]
     Active Substance: GLIPIZIDE
  7. MIRALAX [Concomitant]
     Active Substance: POLYETHYLENE GLYCOL 3350
  8. ALA supplement [Concomitant]
  9. VITAMIN B1 [Concomitant]
     Active Substance: THIAMINE HYDROCHLORIDE
  10. VITAMIN B12 [Concomitant]
     Active Substance: CYANOCOBALAMIN
  11. MAGNESIUM [Concomitant]
     Active Substance: MAGNESIUM

REACTIONS (6)
  - Contrast media reaction [None]
  - Urticaria [None]
  - Lip swelling [None]
  - Pharyngeal swelling [None]
  - Throat tightness [None]
  - Product communication issue [None]

NARRATIVE: CASE EVENT DATE: 20230204
